FAERS Safety Report 5750392-6 (Version None)
Quarter: 2008Q2

REPORT INFORMATION
  Report Type: 
  Country: None (occurrence: None)
  Receive Date: 20080523
  Receipt Date: 20080523
  Transmission Date: 20081010
  Serious: No
  Sender: FDA-Public Use
  Company Number: None

PATIENT
  Age: 80 Year
  Sex: Male
  Weight: 90.7194 kg

DRUGS (4)
  1. AVODART [Suspect]
     Indication: POLLAKIURIA
     Dosage: 0.5MG 1/DAY
     Dates: start: 20061201, end: 20070401
  2. PRAVASTATIN [Concomitant]
  3. VERAPAMIL [Concomitant]
  4. TRIEMPTERENE [Concomitant]

REACTIONS (3)
  - GYNAECOMASTIA [None]
  - NIPPLE PAIN [None]
  - NO THERAPEUTIC RESPONSE [None]
